FAERS Safety Report 5118561-6 (Version None)
Quarter: 2006Q3

REPORT INFORMATION
  Report Type: 
  Country: None (occurrence: None)
  Receive Date: 20060927
  Receipt Date: 20060915
  Transmission Date: 20061208
  Serious: Yes (Hospitalization, Other)
  Sender: FDA-Public Use
  Company Number: 2006085686

PATIENT
  Age: 57 Year
  Sex: Female

DRUGS (3)
  1. PROVERA [Suspect]
     Indication: MENOMETRORRHAGIA
     Dosage: 2.5 MG (2.5 MG, DAILY), ORAL
     Route: 048
     Dates: start: 20010606, end: 20060601
  2. PREMARIN [Suspect]
     Indication: MENOMETRORRHAGIA
     Dosage: 0.625 MG (0.625 MG, DAILY), ORAL
     Route: 048
     Dates: start: 20010606, end: 20060601
  3. BERIZYM (ENZYMES NOS) [Concomitant]

REACTIONS (7)
  - ALANINE AMINOTRANSFERASE INCREASED [None]
  - ASPARTATE AMINOTRANSFERASE INCREASED [None]
  - BLOOD ALKALINE PHOSPHATASE INCREASED [None]
  - BLOOD LACTATE DEHYDROGENASE INCREASED [None]
  - GAMMA-GLUTAMYLTRANSFERASE INCREASED [None]
  - HEPATIC FUNCTION ABNORMAL [None]
  - URTICARIA GENERALISED [None]
